FAERS Safety Report 7198245-3 (Version None)
Quarter: 2010Q4

REPORT INFORMATION
  Report Type: 
  Country: None (occurrence: None)
  Receive Date: 20101227
  Receipt Date: 20101213
  Transmission Date: 20110411
  Serious: Yes (Other)
  Sender: FDA-Public Use
  Company Number: PHHY2010HU85062

PATIENT
  Age: 53 Year
  Sex: Female

DRUGS (4)
  1. ACLASTA [Suspect]
     Indication: OSTEOPOROSIS
     Dosage: UNK
     Dates: start: 20100914
  2. BISOPROLOL [Concomitant]
     Dosage: UNK
     Dates: start: 20070101
  3. NOACID [Concomitant]
     Dosage: UNK
     Dates: start: 20100101
  4. FRONTIN [Concomitant]
     Dosage: UNK
     Dates: start: 20060101

REACTIONS (7)
  - DECREASED IMMUNE RESPONSIVENESS [None]
  - FEELING COLD [None]
  - LARYNGITIS [None]
  - MALAISE [None]
  - PAIN IN EXTREMITY [None]
  - PNEUMONIA [None]
  - PYREXIA [None]
